FAERS Safety Report 19599982 (Version 2)
Quarter: 2021Q3

REPORT INFORMATION
  Report Type: Spontaneous
  Country: FR (occurrence: FR)
  Receive Date: 20210722
  Receipt Date: 20210901
  Transmission Date: 20211014
  Serious: Yes (Other)
  Sender: FDA-Public Use
  Company Number: FR-PFIZER INC-2021867830

PATIENT

DRUGS (1)
  1. PAMIDRONATE DE SODIUM HOSPIRA [Suspect]
     Active Substance: PAMIDRONATE DISODIUM
     Dosage: UNK
     Dates: start: 20210611

REACTIONS (1)
  - Deep vein thrombosis [Unknown]
